FAERS Safety Report 6163876-6 (Version None)
Quarter: 2009Q2

REPORT INFORMATION
  Report Type: 
  Country: None (occurrence: None)
  Receive Date: 20090422
  Receipt Date: 20090416
  Transmission Date: 20091009
  Serious: Yes (Other)
  Sender: FDA-Public Use
  Company Number: ES-MERCK-0903ESP00046

PATIENT
  Sex: Female

DRUGS (4)
  1. ISENTRESS [Suspect]
     Route: 048
     Dates: start: 20080601, end: 20090101
  2. HALOPERIDOL [Concomitant]
     Route: 065
  3. PALIPERIDONE [Suspect]
     Indication: SCHIZOPHRENIA
     Route: 065
     Dates: start: 20080101, end: 20090101
  4. HEPATITIS A VIRUS VACCINE (UNSPECIFIED) AND HEPATITIS B VIRUS VACCINE [Concomitant]
     Route: 065
     Dates: start: 20081001

REACTIONS (1)
  - POLYARTERITIS NODOSA [None]
